FAERS Safety Report 10969923 (Version 3)
Quarter: 2015Q3

REPORT INFORMATION
  Report Type: Spontaneous
  Country: US (occurrence: US)
  Receive Date: 20150331
  Receipt Date: 20150805
  Transmission Date: 20151125
  Serious: No
  Sender: FDA-Public Use
  Company Number: US-PFIZER INC-2015106730

PATIENT
  Age: 60 Year
  Sex: Female

DRUGS (2)
  1. METHYLPREDISOLONE [Suspect]
     Active Substance: METHYLPREDNISOLONE
     Indication: INJECTION SITE PAIN
     Dosage: 4 MG (21 DROPLETS), UNK
  2. ADVIL [Suspect]
     Active Substance: IBUPROFEN
     Indication: INJECTION SITE PAIN
     Dosage: 600, 3X/DAY
     Dates: start: 201501, end: 20150203

REACTIONS (3)
  - Drug ineffective [Unknown]
  - Erythema [Not Recovered/Not Resolved]
  - Peripheral swelling [Not Recovered/Not Resolved]
